FAERS Safety Report 10312077 (Version 5)
Quarter: 2014Q3

REPORT INFORMATION
  Report Type: Spontaneous
  Country: US (occurrence: US)
  Receive Date: 20140717
  Receipt Date: 20140822
  Transmission Date: 20150326
  Serious: Yes (Hospitalization, Other)
  Sender: FDA-Public Use
  Company Number: US-GILEAD-2014-0108922

PATIENT
  Age: 52 Year
  Sex: Female

DRUGS (4)
  1. LETAIRIS [Suspect]
     Active Substance: AMBRISENTAN
     Indication: PULMONARY ARTERIAL HYPERTENSION
     Dosage: 5 MG, QD
     Route: 065
     Dates: start: 20140304
  2. ADEMPAS [Concomitant]
     Active Substance: RIOCIGUAT
  3. REMODULIN [Concomitant]
     Active Substance: TREPROSTINIL
  4. WARFARIN [Concomitant]
     Active Substance: WARFARIN

REACTIONS (7)
  - Colon operation [Unknown]
  - Infection [Unknown]
  - Malaise [Unknown]
  - Surgery [Unknown]
  - Renal failure [Unknown]
  - Diarrhoea [Unknown]
  - Sepsis [Unknown]

NARRATIVE: CASE EVENT DATE: 201407
